FAERS Safety Report 5657408-6 (Version None)
Quarter: 2008Q1

REPORT INFORMATION
  Report Type: 
  Country: None (occurrence: None)
  Receive Date: 20080310
  Receipt Date: 20080225
  Transmission Date: 20080703
  Serious: Yes (Hospitalization, Other)
  Sender: FDA-Public Use
  Company Number: PHHY2008GB02207

PATIENT
  Sex: Female

DRUGS (2)
  1. BACLOFEN [Suspect]
     Dosage: 50 MG, DAILY
  2. BACLOFEN [Suspect]
     Dosage: 10 MG, DAILY

REACTIONS (6)
  - AGITATION [None]
  - CONFUSIONAL STATE [None]
  - DRUG WITHDRAWAL SYNDROME [None]
  - HALLUCINATION [None]
  - INCORRECT DOSE ADMINISTERED [None]
  - TREMOR [None]
